FAERS Safety Report 7733808-5 (Version None)
Quarter: 2011Q3

REPORT INFORMATION
  Report Type: 
  Country: None (occurrence: None)
  Receive Date: 20110907
  Receipt Date: 20110902
  Transmission Date: 20111222
  Serious: Yes (Other)
  Sender: FDA-Public Use
  Company Number: PHHY2011BR79057

PATIENT
  Sex: Male

DRUGS (5)
  1. CARBAMAZEPINE [Suspect]
     Dosage: 200 MG, OT
  2. OXCARBAZEPINE [Suspect]
     Dosage: 600 MG, UNK
  3. GARDENAL ^AVENTIS^ [Concomitant]
     Dosage: 100 MG, UNK
  4. CARBAMAZEPINE [Suspect]
     Dosage: 400 MG, UNK
  5. TEGRETOL [Suspect]
     Dosage: UNK UG/ML, OT

REACTIONS (1)
  - NO ADVERSE EVENT [None]
